FAERS Safety Report 17818937 (Version 5)
Quarter: 2020Q3

REPORT INFORMATION
  Report Type: Spontaneous
  Country: US (occurrence: US)
  Receive Date: 20200522
  Receipt Date: 20200902
  Transmission Date: 20201102
  Serious: Yes (Other)
  Sender: FDA-Public Use
  Company Number: US-ROCHE-2604855

PATIENT
  Age: 78 Year
  Sex: Male

DRUGS (3)
  1. LUCENTIS [Suspect]
     Active Substance: RANIBIZUMAB
     Dosage: ONGOING UNKNOWN
     Route: 031
  2. LUCENTIS [Suspect]
     Active Substance: RANIBIZUMAB
     Indication: DIABETIC RETINOPATHY
     Dosage: THERAPY STATUS: ONGOING YES
     Route: 031
     Dates: start: 20200514
  3. PREDNISONE. [Concomitant]
     Active Substance: PREDNISONE
     Dosage: TAPER 80* 3 DAYS, 60* 3 DAYS, 40* 3 DAYS
     Route: 048

REACTIONS (6)
  - Pain [Recovered/Resolved]
  - Eye inflammation [Recovered/Resolved]
  - Punctate keratitis [Unknown]
  - Uveitis [Unknown]
  - Retinal vasculitis [Recovered/Resolved]
  - Hyphaema [Recovered/Resolved]

NARRATIVE: CASE EVENT DATE: 20200515
